FAERS Safety Report 18093125 (Version 1)
Quarter: 2020Q3

REPORT INFORMATION
  Report Type: Spontaneous
  Country: US (occurrence: US)
  Receive Date: 20200729
  Receipt Date: 20200729
  Transmission Date: 20201103
  Serious: Yes (Death)
  Sender: FDA-Public Use
  Company Number: None

PATIENT
  Age: 80 Year
  Sex: Female
  Weight: 64.9 kg

DRUGS (2)
  1. REMDESIVIR 100MG [Suspect]
     Active Substance: REMDESIVIR
     Indication: SUSPECTED COVID-19
     Route: 042
     Dates: start: 20200723, end: 20200723
  2. REMDESIVIR 100MG [Suspect]
     Active Substance: REMDESIVIR
     Route: 042
     Dates: start: 20200724, end: 20200724

REACTIONS (3)
  - Vascular access complication [None]
  - Therapy interrupted [None]
  - General physical health deterioration [None]

NARRATIVE: CASE EVENT DATE: 20200729
